FAERS Safety Report 9283590 (Version 3)
Quarter: 2013Q2

REPORT INFORMATION
  Report Type: Spontaneous
  Country: JP (occurrence: JP)
  Receive Date: 20130510
  Receipt Date: 20130611
  Transmission Date: 20140414
  Serious: No
  Sender: FDA-Public Use
  Company Number: JP-ROCHE-1223363

PATIENT
  Age: 68 Year
  Sex: Female
  Weight: 43 kg

DRUGS (4)
  1. ACTEMRA [Suspect]
     Indication: RHEUMATOID ARTHRITIS
     Dosage: DOSAGE IS UNCERTAIN.
     Route: 041
     Dates: start: 20120828, end: 20121218
  2. ENBREL [Concomitant]
     Indication: RHEUMATOID ARTHRITIS
     Route: 058
     Dates: start: 200909, end: 20120831
  3. ALFAROL [Concomitant]
     Indication: PROPHYLAXIS
     Route: 048
  4. PREDOHAN [Concomitant]
     Indication: RHEUMATOID ARTHRITIS
     Route: 048
     Dates: start: 20120925

REACTIONS (1)
  - Myositis [Recovered/Resolved]
